FAERS Safety Report 8780170 (Version 1)
Quarter: 2012Q4

REPORT INFORMATION
  Report Type: Spontaneous
  Country: US (occurrence: None)
  Receive Date: 20120831
  Receipt Date: 20120831
  Transmission Date: 20130627
  Serious: No
  Sender: FDA-Public Use
  Company Number: None

PATIENT
  Age: 64 Year
  Sex: Male
  Weight: 51.53 kg

DRUGS (2)
  1. BOCEPREVIR [Suspect]
     Route: 048
     Dates: start: 20120315, end: 20120328
  2. PEGINTERFERON [Suspect]
     Dosage: ml
     Dates: start: 20120222, end: 20120328

REACTIONS (4)
  - Nausea [None]
  - Vomiting [None]
  - Asthenia [None]
  - Decreased appetite [None]
